FAERS Safety Report 21515218 (Version 1)
Quarter: 2022Q4

REPORT INFORMATION
  Report Type: Other
  Country: JP (occurrence: JP)
  Receive Date: 20221027
  Receipt Date: 20221027
  Transmission Date: 20230113
  Serious: Yes (Other)
  Sender: FDA-Public Use
  Company Number: JP-ALVOGEN-2022088526

PATIENT
  Age: 37 Year
  Sex: Female

DRUGS (7)
  1. OXYCODONE [Suspect]
     Active Substance: OXYCODONE
     Indication: Pain
     Dosage: AT 14?WEEK PREGNANCY.
  2. OXYCODONE [Suspect]
     Active Substance: OXYCODONE
     Indication: Pain
     Dosage: AT 17?WEEK  GESTATION.
  3. OXYCODONE [Suspect]
     Active Substance: OXYCODONE
     Indication: Pain
     Dosage: AT 35?WEEK GESTATION.
  4. MEPIVACAINE HYDROCHLORIDE [Concomitant]
     Active Substance: MEPIVACAINE HYDROCHLORIDE
     Indication: Pain
     Dosage: 2.5 ML OF 1% IN L4 ?AND L5 NERVE ROOT BLOCK
  5. DICLOFENAC [Concomitant]
     Active Substance: DICLOFENAC
     Indication: Gait disturbance
     Dosage: (50  MG)  ONCE/TWICE  DAILY
  6. LOXOPROFEN SODIUM [Concomitant]
     Active Substance: LOXOPROFEN SODIUM
     Indication: Gait disturbance
     Dosage: 180 MG/DAY
  7. ACETAMINOPHEN [Concomitant]
     Active Substance: ACETAMINOPHEN
     Indication: Gait disturbance

REACTIONS (3)
  - Hyperemesis gravidarum [Unknown]
  - Nausea [Unknown]
  - Exposure during pregnancy [Unknown]
